FAERS Safety Report 6708075-1 (Version None)
Quarter: 2010Q2

REPORT INFORMATION
  Report Type: 
  Country: None (occurrence: None)
  Receive Date: 20100503
  Receipt Date: 20090318
  Transmission Date: 20101027
  Serious: No
  Sender: FDA-Public Use
  Company Number: US-ASTRAZENECA-2009UW06946

PATIENT
  Age: 62 Year
  Sex: Female
  Weight: 81.6 kg

DRUGS (9)
  1. NEXIUM [Suspect]
     Indication: GASTROOESOPHAGEAL REFLUX DISEASE
     Route: 048
  2. COPAXONE [Concomitant]
  3. PROVIGEL [Concomitant]
  4. CYMBALTA [Concomitant]
  5. LEVOTHROID [Concomitant]
  6. PERCOCET [Concomitant]
  7. PREMARIN [Concomitant]
  8. VYTORIN [Concomitant]
  9. KLONAZEPAN [Concomitant]

REACTIONS (3)
  - CHOKING [None]
  - DRUG INEFFECTIVE [None]
  - OESOPHAGEAL OPERATION [None]
